FAERS Safety Report 14217581 (Version 4)
Quarter: 2018Q1

REPORT INFORMATION
  Report Type: Report from Study
  Country: US (occurrence: US)
  Receive Date: 20171123
  Receipt Date: 20180104
  Transmission Date: 20180508
  Serious: Yes (Hospitalization, Other)
  Sender: FDA-Public Use
  Company Number: US-VIFOR (INTERNATIONAL) INC.-VIT-2017-10176

PATIENT
  Age: 88 Year
  Sex: Female

DRUGS (8)
  1. VELTASSA [Suspect]
     Active Substance: PATIROMER
     Indication: HYPERKALAEMIA
     Route: 048
     Dates: start: 20170910
  2. METOPROLOL TARTRATE. [Concomitant]
     Active Substance: METOPROLOL TARTRATE
  3. HYDRALAZINE [Concomitant]
     Active Substance: HYDRALAZINE HYDROCHLORIDE
  4. FUROSEMIDE. [Concomitant]
     Active Substance: FUROSEMIDE
  5. PIOGLITAZONE. [Concomitant]
     Active Substance: PIOGLITAZONE
  6. GLIPIZIDE. [Concomitant]
     Active Substance: GLIPIZIDE
  7. PRAVASTATIN. [Concomitant]
     Active Substance: PRAVASTATIN
  8. AMLODIPINE [Concomitant]
     Active Substance: AMLODIPINE BESYLATE

REACTIONS (10)
  - Weight increased [Recovering/Resolving]
  - Chest discomfort [Recovering/Resolving]
  - Fluid retention [Not Recovered/Not Resolved]
  - Cardiac failure congestive [Recovering/Resolving]
  - Hypertension [Recovering/Resolving]
  - Pericardial effusion [Not Recovered/Not Resolved]
  - Oedema peripheral [Recovering/Resolving]
  - Peripheral swelling [Recovering/Resolving]
  - Insomnia [Unknown]
  - Constipation [Not Recovered/Not Resolved]

NARRATIVE: CASE EVENT DATE: 2017
